FAERS Safety Report 11119539 (Version 1)
Quarter: 2015Q2

REPORT INFORMATION
  Report Type: Spontaneous
  Country: US (occurrence: None)
  Receive Date: 20150515
  Receipt Date: 20150515
  Transmission Date: 20150821
  Serious: No
  Sender: FDA-Public Use
  Company Number: None

PATIENT
  Age: 42 Year
  Sex: Female

DRUGS (1)
  1. LUPRON [Suspect]
     Active Substance: LEUPROLIDE ACETATE
     Indication: ENDOMETRIOSIS
     Dosage: 11.25MG ONCE Q 3 MONTHS
     Route: 030
     Dates: start: 20140414, end: 201505

REACTIONS (1)
  - General symptom [None]

NARRATIVE: CASE EVENT DATE: 20150514
